FAERS Safety Report 8025810-3 (Version None)
Quarter: 2012Q1

REPORT INFORMATION
  Report Type: 
  Country: None (occurrence: None)
  Receive Date: 20120105
  Receipt Date: 20110825
  Transmission Date: 20120608
  Serious: No
  Sender: FDA-Public Use
  Company Number: US-ABBOTT-11P-163-0849968-00

PATIENT
  Age: 72 Year
  Sex: Female
  Weight: 68.1 kg

DRUGS (2)
  1. SYNTHROID [Suspect]
     Indication: THYROIDECTOMY
  2. SYNTHROID [Suspect]
     Indication: BASEDOW'S DISEASE
     Dates: start: 19890101

REACTIONS (13)
  - DRY SKIN [None]
  - INSOMNIA [None]
  - SKIN BURNING SENSATION [None]
  - THYROID FUNCTION TEST ABNORMAL [None]
  - ATRIAL FIBRILLATION [None]
  - ABDOMINAL DISCOMFORT [None]
  - ALOPECIA [None]
  - TREMOR [None]
  - BURNING SENSATION [None]
  - CHEST PAIN [None]
  - HEART RATE INCREASED [None]
  - DIARRHOEA [None]
  - URTICARIA [None]
